FAERS Safety Report 21187451 (Version 1)
Quarter: 2022Q3

REPORT INFORMATION
  Report Type: Spontaneous
  Country: KR (occurrence: KR)
  Receive Date: 20220808
  Receipt Date: 20220808
  Transmission Date: 20221026
  Serious: Yes (Other)
  Sender: FDA-Public Use
  Company Number: KR-SCALL-2022-KR-000040

PATIENT
  Age: 71 Year
  Sex: Male
  Weight: 59 kg

DRUGS (5)
  1. CARVEDILOL [Suspect]
     Active Substance: CARVEDILOL
     Indication: Product used for unknown indication
     Dosage: UNKNOWN
  2. AMLODIPINE [Suspect]
     Active Substance: AMLODIPINE BESYLATE
     Dosage: UNKNOWN
  3. NIFEDIPINE [Suspect]
     Active Substance: NIFEDIPINE
     Dosage: UNKNOWN
  4. VALSARTAN [Concomitant]
     Active Substance: VALSARTAN
  5. INSULIN NOS [Concomitant]
     Active Substance: INSULIN NOS

REACTIONS (1)
  - BRASH syndrome [Recovered/Resolved]
